FAERS Safety Report 5207094-4 (Version None)
Quarter: 2007Q1

REPORT INFORMATION
  Report Type: 
  Country: None (occurrence: None)
  Receive Date: 20070110
  Receipt Date: 20061227
  Transmission Date: 20070707
  Serious: Yes (Death)
  Sender: FDA-Public Use
  Company Number: DISUS-07-0007

PATIENT
  Age: 3 Year
  Sex: Male

DRUGS (1)
  1. DIPRIVAN [Suspect]
     Indication: SEDATION
     Dosage: PARENTERAL
     Route: 051
     Dates: start: 20020601, end: 20020601

REACTIONS (1)
  - ANOXIC ENCEPHALOPATHY [None]
